FAERS Safety Report 4784725-4 (Version None)
Quarter: 2005Q3

REPORT INFORMATION
  Report Type: 
  Country: None (occurrence: None)
  Receive Date: 20050929
  Receipt Date: 20050929
  Transmission Date: 20060218
  Serious: No
  Sender: FDA-Public Use
  Company Number: None

PATIENT
  Age: 72 Year
  Sex: Female
  Weight: 68.0396 kg

DRUGS (1)
  1. KADIAN [Suspect]
     Indication: PAIN
     Dosage: 3 X A DAY

REACTIONS (5)
  - CLAVICLE FRACTURE [None]
  - FALL [None]
  - INJURY [None]
  - SKIN DISCOLOURATION [None]
  - SLEEP WALKING [None]
